FAERS Safety Report 16582847 (Version 1)
Quarter: 2019Q3

REPORT INFORMATION
  Report Type: Spontaneous
  Country: US (occurrence: US)
  Receive Date: 20190603
  Receipt Date: 20190603
  Transmission Date: 20191004
  Serious: No
  Sender: FDA-Public Use
  Company Number: None

PATIENT
  Age: 44 Year
  Sex: Female

DRUGS (10)
  1. CLOBETASOL [Concomitant]
     Active Substance: CLOBETASOL
  2. HYDROXYCHLOROQUINE [Concomitant]
     Active Substance: HYDROXYCHLOROQUINE
  3. ADEMPAS [Suspect]
     Active Substance: RIOCIGUAT
     Indication: PULMONARY HYPERTENSION
     Route: 048
     Dates: start: 201902, end: 201903
  4. MIRENA [Concomitant]
     Active Substance: LEVONORGESTREL
  5. NORCO [Concomitant]
     Active Substance: ACETAMINOPHEN\HYDROCODONE BITARTRATE
  6. LASTAMATINIB [Concomitant]
  7. QVAR [Concomitant]
     Active Substance: BECLOMETHASONE DIPROPIONATE
  8. AZATHIOPRINE. [Concomitant]
     Active Substance: AZATHIOPRINE
  9. ALBUTEROL HFA [Concomitant]
     Active Substance: ALBUTEROL SULFATE
  10. WARFARIN [Concomitant]
     Active Substance: WARFARIN

REACTIONS (1)
  - Endarterectomy [None]

NARRATIVE: CASE EVENT DATE: 20190415
